FAERS Safety Report 5592564-X (Version None)
Quarter: 2008Q1

REPORT INFORMATION
  Report Type: 
  Country: None (occurrence: None)
  Receive Date: 20080111
  Receipt Date: 20071226
  Transmission Date: 20080703
  Serious: Yes (Other)
  Sender: FDA-Public Use
  Company Number: DSA_31154_2008

PATIENT
  Sex: Male

DRUGS (6)
  1. MONO-TILDIEM [Suspect]
     Indication: HYPERTENSION
     Dosage: (300 MG QD ORAL), (300 MG QD ORAL)
     Route: 048
     Dates: start: 20071013, end: 20071024
  2. MONO-TILDIEM [Suspect]
     Indication: HYPERTENSION
     Dosage: (300 MG QD ORAL), (300 MG QD ORAL)
     Route: 048
     Dates: start: 20071106, end: 20071123
  3. EPLERENONE [Suspect]
     Indication: HYPERTENSION
     Dosage: (25 MG QD ORAL), (25 MG QD ORAL)
     Route: 048
     Dates: start: 20071013, end: 20071024
  4. EPLERENONE [Suspect]
     Indication: HYPERTENSION
     Dosage: (25 MG QD ORAL), (25 MG QD ORAL)
     Route: 048
     Dates: start: 20071106, end: 20071126
  5. ALLOPURINOL [Concomitant]
  6. ROPINIROLE HCL [Concomitant]

REACTIONS (5)
  - ALANINE AMINOTRANSFERASE INCREASED [None]
  - ASPARTATE AMINOTRANSFERASE INCREASED [None]
  - BLOOD ALKALINE PHOSPHATASE INCREASED [None]
  - GAMMA-GLUTAMYLTRANSFERASE INCREASED [None]
  - JAUNDICE [None]
